FAERS Safety Report 7465291-1 (Version None)
Quarter: 2011Q2

REPORT INFORMATION
  Report Type: 
  Country: None (occurrence: None)
  Receive Date: 20110509
  Receipt Date: 20110506
  Transmission Date: 20111010
  Serious: Yes (Death, Hospitalization)
  Sender: FDA-Public Use
  Company Number: PHHO2011GB07852

PATIENT

DRUGS (6)
  1. SOMATULINE [Concomitant]
  2. OMEPRAZOLE [Concomitant]
  3. ONDANSETRON [Concomitant]
  4. AFINITOR [Suspect]
     Indication: NEUROENDOCRINE TUMOUR
     Dosage: UNK
     Route: 048
  5. ALLOPURINOL [Concomitant]
  6. CREON [Concomitant]

REACTIONS (1)
  - DEATH [None]
